FAERS Safety Report 18321471 (Version 1)
Quarter: 2020Q3

REPORT INFORMATION
  Report Type: Other
  Country: US (occurrence: US)
  Receive Date: 20200929
  Receipt Date: 20200929
  Transmission Date: 20201103
  Serious: Yes (Other)
  Sender: FDA-Public Use
  Company Number: US-ROCHE-2681818

PATIENT
  Sex: Male
  Weight: 88.53 kg

DRUGS (10)
  1. VITAMIN D3 [Concomitant]
     Active Substance: CHOLECALCIFEROL
     Indication: VITAMIN D DECREASED
     Route: 048
  2. ELDERBERRY [Concomitant]
     Active Substance: HERBALS
  3. PHENYTOIN. [Concomitant]
     Active Substance: PHENYTOIN
  4. DULOXETINE. [Concomitant]
     Active Substance: DULOXETINE
  5. HYDROMORPHONE [Concomitant]
     Active Substance: HYDROMORPHONE
  6. ZINC. [Concomitant]
     Active Substance: ZINC
  7. OCREVUS [Suspect]
     Active Substance: OCRELIZUMAB
     Indication: RELAPSING-REMITTING MULTIPLE SCLEROSIS
     Dosage: DATE OF TREATMENT : 19/AUG/2020, 17/FEB/2020, 13/AUG/2019, 5/FEB/2019, 13/AUG/2018
     Route: 042
     Dates: start: 20170814
  8. OCREVUS [Suspect]
     Active Substance: OCRELIZUMAB
     Route: 042
  9. VITAMIN C [Concomitant]
     Active Substance: ASCORBIC ACID
  10. MODAFINIL. [Concomitant]
     Active Substance: MODAFINIL

REACTIONS (7)
  - Peripheral swelling [Not Recovered/Not Resolved]
  - Neuralgia [Not Recovered/Not Resolved]
  - Cellulitis [Not Recovered/Not Resolved]
  - Nephrolithiasis [Not Recovered/Not Resolved]
  - Migraine [Not Recovered/Not Resolved]
  - Drug ineffective [Unknown]
  - Multiple sclerosis relapse [Unknown]

NARRATIVE: CASE EVENT DATE: 2018
